FAERS Safety Report 12360137 (Version 5)
Quarter: 2016Q4

REPORT INFORMATION
  Report Type: Report from Study
  Country: US (occurrence: US)
  Receive Date: 20160512
  Receipt Date: 20161222
  Transmission Date: 20170207
  Serious: Yes (Hospitalization)
  Sender: FDA-Public Use
  Company Number: US-ACTELION-A-US2016-135724

PATIENT
  Age: 54 Year
  Sex: Female

DRUGS (17)
  1. TREPROSTINIL DIOLAMIN [Suspect]
     Active Substance: TREPROSTINIL DIOLAMINE
     Dosage: 2.5 MG, BID
     Route: 065
  2. SPIRONOLACTONE. [Concomitant]
     Active Substance: SPIRONOLACTONE
  3. BUMEX [Concomitant]
     Active Substance: BUMETANIDE
  4. DOXEPIN [Concomitant]
     Active Substance: DOXEPIN
  5. RIOCIGUAT [Suspect]
     Active Substance: RIOCIGUAT
     Dosage: 2.5 UNK, UNK
     Route: 065
  6. XARELTO [Concomitant]
     Active Substance: RIVAROXABAN
  7. OPSUMIT [Suspect]
     Active Substance: MACITENTAN
     Indication: PULMONARY HYPERTENSION
     Dosage: 10 MG, QD
     Route: 048
     Dates: start: 20160321
  8. REMODULIN [Suspect]
     Active Substance: TREPROSTINIL
     Indication: PRODUCT USED FOR UNKNOWN INDICATION
     Route: 065
  9. DIGOXIN. [Concomitant]
     Active Substance: DIGOXIN
  10. FUROSEMIDE. [Concomitant]
     Active Substance: FUROSEMIDE
  11. RIOCIGUAT [Suspect]
     Active Substance: RIOCIGUAT
     Indication: PRODUCT USED FOR UNKNOWN INDICATION
     Dosage: 2 MG, TID
     Route: 065
     Dates: start: 20160220
  12. LOSARTAN. [Concomitant]
     Active Substance: LOSARTAN
  13. OPSUMIT [Suspect]
     Active Substance: MACITENTAN
     Indication: PULMONARY ARTERIAL HYPERTENSION
  14. METOPROLOL. [Concomitant]
     Active Substance: METOPROLOL
  15. TREPROSTINIL DIOLAMIN [Suspect]
     Active Substance: TREPROSTINIL DIOLAMINE
     Indication: PRODUCT USED FOR UNKNOWN INDICATION
     Dosage: 2.5 MG, TID
     Route: 065
  16. TREPROSTINIL DIOLAMIN [Suspect]
     Active Substance: TREPROSTINIL DIOLAMINE
     Dosage: 2.625 MG, QAM
     Route: 065
  17. OXYCODONE [Concomitant]
     Active Substance: OXYCODONE

REACTIONS (13)
  - Headache [Recovered/Resolved]
  - Pulmonary hypertension [Recovered/Resolved with Sequelae]
  - Walking distance test abnormal [Recovered/Resolved]
  - Connective tissue disorder [Unknown]
  - Right ventricular failure [Recovered/Resolved with Sequelae]
  - Pain in jaw [Recovering/Resolving]
  - Nausea [Recovered/Resolved]
  - Brain natriuretic peptide increased [Recovering/Resolving]
  - Dyspnoea exertional [Recovered/Resolved with Sequelae]
  - Fluid overload [Recovered/Resolved]
  - Lung disorder [Recovered/Resolved]
  - Pulmonary veno-occlusive disease [Recovered/Resolved]
  - Oedema peripheral [Recovered/Resolved]

NARRATIVE: CASE EVENT DATE: 20160408
